FAERS Safety Report 22591026 (Version 1)
Quarter: 2023Q2

REPORT INFORMATION
  Report Type: Other
  Country: CN (occurrence: None)
  Receive Date: 20230612
  Receipt Date: 20230612
  Transmission Date: 20230722
  Serious: Yes (Other)
  Sender: FDA-Public Use
  Company Number: CN-ROCHE-3364163

PATIENT

DRUGS (3)
  1. BEVACIZUMAB [Suspect]
     Active Substance: BEVACIZUMAB
     Indication: Lung adenocarcinoma
     Route: 042
  2. PEMETREXED [Suspect]
     Active Substance: PEMETREXED
     Indication: Lung adenocarcinoma
     Dosage: ON DAY 1
     Route: 065
  3. CARBOPLATIN [Suspect]
     Active Substance: CARBOPLATIN
     Indication: Lung adenocarcinoma
     Dosage: DOSE CALCULATED ACCORDING TO AREA UNDER THE CURVE (AUC) = 5 ON DAY 1
     Route: 065

REACTIONS (14)
  - Hepatic failure [Unknown]
  - Renal failure [Unknown]
  - White blood cell count decreased [Unknown]
  - Neutrophil count decreased [Unknown]
  - Anaemia [Unknown]
  - Platelet count decreased [Unknown]
  - Gastrointestinal disorder [Unknown]
  - Alopecia [Unknown]
  - Rash [Unknown]
  - Myalgia [Unknown]
  - Fatigue [Unknown]
  - Paraesthesia [Unknown]
  - Proteinuria [Unknown]
  - Hypertension [Unknown]
